FAERS Safety Report 25934652 (Version 2)
Quarter: 2025Q4

REPORT INFORMATION
  Report Type: Spontaneous
  Country: CN (occurrence: CN)
  Receive Date: 20251017
  Receipt Date: 20251023
  Transmission Date: 20260118
  Serious: Yes (Death, Hospitalization, Other)
  Sender: MERCK SHARP & DOHME LLC
  Company Number: CN-009507513-2338785

PATIENT
  Age: 81 Year
  Sex: Male

DRUGS (1)
  1. PEMBROLIZUMAB [Suspect]
     Active Substance: PEMBROLIZUMAB
     Indication: Squamous cell carcinoma of lung
     Route: 041
     Dates: start: 20250516, end: 20250829

REACTIONS (3)
  - Myocardial injury [Fatal]
  - Renal injury [Recovered/Resolved with Sequelae]
  - Ill-defined disorder [Unknown]

NARRATIVE: CASE EVENT DATE: 20250901
